FAERS Safety Report 9986258 (Version 1)
Quarter: 2014Q1

REPORT INFORMATION
  Report Type: Report from Study
  Country: US (occurrence: US)
  Receive Date: 20140307
  Receipt Date: 20140307
  Transmission Date: 20141002
  Serious: No
  Sender: FDA-Public Use
  Company Number: US-ABBVIE-13P-163-1086408-00

PATIENT
  Age: 56 Year
  Sex: Female

DRUGS (13)
  1. HUMIRA [Suspect]
     Indication: COLITIS ULCERATIVE
     Dates: start: 20130321
  2. HUMIRA [Suspect]
     Dates: start: 20130404, end: 20130404
  3. ELESTRIN [Concomitant]
     Indication: HOT FLUSH
     Dosage: APPLIED DAILY
  4. VESICARE [Concomitant]
     Indication: HYPERTONIC BLADDER
  5. AMBIEN [Concomitant]
     Indication: INSOMNIA
     Dosage: AT BEDTIME
  6. DEXILANT [Concomitant]
     Indication: GASTROOESOPHAGEAL REFLUX DISEASE
  7. CELEBREX [Concomitant]
     Indication: ARTHRITIS
  8. ASACOL [Concomitant]
     Indication: COLITIS ULCERATIVE
  9. CENTRUM 50+ FOR WOMEN [Concomitant]
     Indication: VITAMIN SUPPLEMENTATION
     Dosage: DAILY
  10. PREDNISONE [Concomitant]
     Indication: COLITIS ULCERATIVE
     Dosage: 10MG-40MG DAILY
  11. CANASA SUPPOSITORIES [Concomitant]
     Indication: COLITIS ULCERATIVE
  12. LEXAPRO [Concomitant]
     Indication: DEPRESSION
  13. HYDROCODONE [Concomitant]
     Indication: PAIN
     Dosage: AS NEEDED

REACTIONS (5)
  - Cough [Recovering/Resolving]
  - Nasopharyngitis [Recovering/Resolving]
  - Pneumonia [Recovered/Resolved]
  - Fungal infection [Unknown]
  - Chest pain [Unknown]
